FAERS Safety Report 23904993 (Version 3)
Quarter: 2024Q2

REPORT INFORMATION
  Report Type: Spontaneous
  Country: JP (occurrence: JP)
  Receive Date: 20240527
  Receipt Date: 20240618
  Transmission Date: 20240716
  Serious: Yes (Hospitalization, Disabling, Other)
  Sender: FDA-Public Use
  Company Number: JP-MSD-M2024-19435

PATIENT
  Age: 77 Year
  Sex: Male
  Weight: 51 kg

DRUGS (5)
  1. TEMODAL [Suspect]
     Active Substance: TEMOZOLOMIDE
     Indication: Malignant glioma
     Dosage: 240 MILLIGRAM, QD
     Route: 048
     Dates: start: 20240213, end: 20240217
  2. TEMODAL [Suspect]
     Active Substance: TEMOZOLOMIDE
     Dosage: 240 MILLIGRAM, QD
     Route: 048
     Dates: start: 20240311, end: 20240315
  3. TEMODAL [Suspect]
     Active Substance: TEMOZOLOMIDE
     Dosage: 300 MILLIGRAM, QD
     Route: 048
     Dates: start: 20240408, end: 20240412
  4. TEMODAL [Suspect]
     Active Substance: TEMOZOLOMIDE
     Dosage: 100 MILLIGRAM, QD
     Route: 048
     Dates: start: 20240508, end: 20240512
  5. TEMODAL [Suspect]
     Active Substance: TEMOZOLOMIDE
     Dosage: 220 MILLIGRAM, QD
     Route: 048
     Dates: start: 20240605

REACTIONS (2)
  - Malignant neoplasm progression [Unknown]
  - Brain oedema [Unknown]

NARRATIVE: CASE EVENT DATE: 20240508
